FAERS Safety Report 15110995 (Version 1)
Quarter: 2018Q2

REPORT INFORMATION
  Report Type: Spontaneous
  Country: US (occurrence: US)
  Receive Date: 20180612
  Receipt Date: 20180612
  Transmission Date: 20180711
  Serious: No
  Sender: FDA-Public Use
  Company Number: None

PATIENT
  Age: 21 Year
  Sex: Male

DRUGS (2)
  1. VANCOMYCIN [Suspect]
     Active Substance: VANCOMYCIN
     Indication: SKIN INFECTION
     Route: 042
     Dates: start: 20180608, end: 20180608
  2. VANCOMYCIN [Suspect]
     Active Substance: VANCOMYCIN
     Indication: SKIN INFECTION
     Route: 042
     Dates: start: 20180608, end: 20180608

REACTIONS (3)
  - Rash [None]
  - Scratch [None]
  - Pruritus [None]

NARRATIVE: CASE EVENT DATE: 20180608
